FAERS Safety Report 18032057 (Version 2)
Quarter: 2020Q3

REPORT INFORMATION
  Report Type: Spontaneous
  Country: FR (occurrence: FR)
  Receive Date: 20200716
  Receipt Date: 20200720
  Transmission Date: 20201103
  Serious: Yes (Other)
  Sender: FDA-Public Use
  Company Number: FR-TEVA-2020-FR-1800188

PATIENT
  Age: 69 Year
  Sex: Male
  Weight: 93 kg

DRUGS (7)
  1. LEVOFLOXACINE HEMIHYDRATE [Suspect]
     Active Substance: LEVOFLOXACIN
     Indication: INFECTION PROPHYLAXIS
     Dosage: 750 MG
     Route: 048
     Dates: start: 20200312, end: 20200514
  2. ATACAND [Concomitant]
     Active Substance: CANDESARTAN CILEXETIL
     Route: 048
     Dates: end: 20200514
  3. FUROSEMIDE. [Concomitant]
     Active Substance: FUROSEMIDE
     Indication: HYPERTENSION
     Route: 048
  4. FUCIDINE (FUSIDIC ACID) [Suspect]
     Active Substance: FUSIDIC ACID
     Indication: ANTIBIOTIC PROPHYLAXIS
     Route: 048
     Dates: start: 20200421, end: 20200514
  5. DALACINE [Suspect]
     Active Substance: CLINDAMYCIN
     Indication: ANTIBIOTIC PROPHYLAXIS
     Route: 048
     Dates: start: 20200312, end: 20200407
  6. RAMIPRIL. [Concomitant]
     Active Substance: RAMIPRIL
     Indication: HYPERTENSION
     Route: 048
     Dates: end: 20200514
  7. LEVOTHYROX [Concomitant]
     Active Substance: LEVOTHYROXINE
     Route: 048

REACTIONS (2)
  - Prerenal failure [Recovering/Resolving]
  - Diarrhoea [Recovering/Resolving]

NARRATIVE: CASE EVENT DATE: 20200312
